FAERS Safety Report 4643375-0 (Version None)
Quarter: 2005Q2

REPORT INFORMATION
  Report Type: 
  Country: None (occurrence: None)
  Receive Date: 20050421
  Receipt Date: 20050413
  Transmission Date: 20051028
  Serious: No
  Sender: FDA-Public Use
  Company Number: 04-000139

PATIENT
  Age: 61 Year
  Sex: Female
  Weight: 70.7 kg

DRUGS (2)
  1. FEMRING [Suspect]
     Indication: MENOPAUSAL SYMPTOMS
     Dosage: 0.05 MG, QD, VAGINAL
     Route: 067
     Dates: start: 20030601, end: 20040308
  2. LIPITOR [Concomitant]

REACTIONS (6)
  - ANTINUCLEAR ANTIBODY POSITIVE [None]
  - DYSPAREUNIA [None]
  - EXCESSIVE GRANULATION TISSUE [None]
  - MEDICAL DEVICE COMPLICATION [None]
  - VAGINAL DISORDER [None]
  - VAGINAL EXAMINATION ABNORMAL [None]
